FAERS Safety Report 6968174-6 (Version None)
Quarter: 2010Q3

REPORT INFORMATION
  Report Type: 
  Country: None (occurrence: None)
  Receive Date: 20100907
  Receipt Date: 20091106
  Transmission Date: 20110219
  Serious: No
  Sender: FDA-Public Use
  Company Number: US-TYCO HEALTHCARE/MALLINCKRODT-T200902045

PATIENT
  Sex: Female
  Weight: 63.492 kg

DRUGS (3)
  1. MD-GASTROVIEW [Suspect]
     Indication: COMPUTERISED TOMOGRAM
     Dosage: 2 TBSPS WITH APPLE JUICE
     Route: 048
     Dates: start: 20091105, end: 20091105
  2. WELLBUTRIN [Concomitant]
     Dosage: 30 MG, QD
     Route: 048
  3. CELEXA [Concomitant]
     Dosage: 5 MG, QD
     Route: 048

REACTIONS (1)
  - FAECES DISCOLOURED [None]
